FAERS Safety Report 8494891-5 (Version None)
Quarter: 2012Q3

REPORT INFORMATION
  Report Type: 
  Country: None (occurrence: None)
  Receive Date: 20120709
  Receipt Date: 20120628
  Transmission Date: 20120928
  Serious: Yes (Other)
  Sender: FDA-Public Use
  Company Number: US-ASTELLAS-2012US004463

PATIENT
  Sex: Male
  Weight: 60 kg

DRUGS (20)
  1. ACETAMINOPHEN [Concomitant]
     Indication: PRODUCT USED FOR UNKNOWN INDICATION
     Dosage: 325-650 MG, Q 6 HOURS, PRN
     Route: 048
  2. ROBITUSSIN DM [Concomitant]
     Indication: COUGH
     Dosage: UNK
     Route: 048
  3. ZOCOR [Concomitant]
     Indication: PRODUCT USED FOR UNKNOWN INDICATION
     Dosage: 80 MG, QHS
     Route: 048
     Dates: start: 20120326
  4. GLUCOPHAGE [Concomitant]
     Indication: PRODUCT USED FOR UNKNOWN INDICATION
     Dosage: 500 MG, BID
     Route: 048
     Dates: start: 20120326
  5. TYLENOL PM [Concomitant]
     Indication: PRODUCT USED FOR UNKNOWN INDICATION
     Dosage: QHS 25-500 MG
     Route: 048
  6. SENOKOT                            /00936101/ [Concomitant]
     Indication: PRODUCT USED FOR UNKNOWN INDICATION
     Dosage: 2 DF, 8.6-50 MG, BID
     Route: 048
     Dates: start: 20111013
  7. MULTI-VITAMINS [Concomitant]
     Indication: PRODUCT USED FOR UNKNOWN INDICATION
     Dosage: 1 DF, UID/QD
     Route: 048
  8. DECADRON [Concomitant]
     Indication: PRODUCT USED FOR UNKNOWN INDICATION
     Dosage: 4 MG, BID
     Route: 048
     Dates: start: 20120617, end: 20120620
  9. ASPIRIN [Concomitant]
     Indication: PRODUCT USED FOR UNKNOWN INDICATION
     Dosage: 81 MG, UID/QD
     Route: 048
  10. CELEXA [Concomitant]
     Indication: PRODUCT USED FOR UNKNOWN INDICATION
     Dosage: 30 MG, UID/QD
     Route: 048
     Dates: start: 20111228
  11. COMBIVENT [Concomitant]
     Indication: DYSPNOEA
     Dosage: 2 DF, Q6 HOURS, PRN
     Route: 002
     Dates: start: 20110815
  12. RITALIN [Concomitant]
     Indication: PRODUCT USED FOR UNKNOWN INDICATION
     Dosage: 5 MG, BID
     Route: 048
     Dates: start: 20120522
  13. IMODIUM [Concomitant]
     Indication: DIARRHOEA
     Dosage: 2 MG, PRN
     Route: 048
  14. NITROGLYCERIN [Concomitant]
     Indication: CHEST PAIN
     Dosage: 0.4 MG, PRN
     Route: 060
     Dates: start: 20110601
  15. ERLOTINIB HYDROCHLORIDE [Suspect]
     Dosage: 100 MG, UID/QD
     Route: 048
     Dates: start: 20120503, end: 20120514
  16. FOLVITE                            /00024201/ [Concomitant]
     Indication: PRODUCT USED FOR UNKNOWN INDICATION
     Dosage: 1 MG, UID/QD
     Route: 048
     Dates: start: 20120611
  17. PLAVIX [Concomitant]
     Indication: PRODUCT USED FOR UNKNOWN INDICATION
     Dosage: UNK
     Route: 048
     Dates: start: 20100605
  18. ERLOTINIB HYDROCHLORIDE [Suspect]
     Indication: NON-SMALL CELL LUNG CANCER STAGE IV
     Dosage: 150 MG, UID/QD
     Route: 048
     Dates: start: 20120410
  19. EMLA [Concomitant]
     Indication: PRODUCT USED FOR UNKNOWN INDICATION
     Dosage: 30 MG, PRN
     Route: 061
     Dates: start: 20120306
  20. APO-PYRIDOXINE [Concomitant]
     Indication: PRODUCT USED FOR UNKNOWN INDICATION
     Dosage: 1 DF, TID
     Route: 048

REACTIONS (10)
  - RASH [None]
  - LENS DISORDER [None]
  - VITREOUS FLOATERS [None]
  - DIARRHOEA [None]
  - DECREASED APPETITE [None]
  - DRUG INEFFECTIVE [None]
  - FAILURE TO THRIVE [None]
  - FATIGUE [None]
  - NEOPLASM MALIGNANT [None]
  - EYE PRURITUS [None]
